FAERS Safety Report 4408328-6 (Version None)
Quarter: 2004Q3

REPORT INFORMATION
  Report Type: 
  Country: None (occurrence: None)
  Receive Date: 20040722
  Receipt Date: 20040715
  Transmission Date: 20050211
  Serious: Yes (Other)
  Sender: FDA-Public Use
  Company Number: STA-AE-04-MTX-308

PATIENT
  Age: 53 Year
  Sex: Male

DRUGS (4)
  1. METHOTREXATE [Suspect]
     Indication: ACUTE PROMYELOCYTIC LEUKAEMIA
     Dosage: 25 MG 1X PER 1 WK
     Dates: start: 20030901
  2. ATRA, CONTROL FOR GEMTUZUMAB OZOGAMICIN (ALL-TRANS RETINOIC ACID, CONT [Suspect]
     Indication: ACUTE PROMYELOCYTIC LEUKAEMIA
     Dosage: 80 MG 1X PER 1 DAY
     Dates: start: 20030901
  3. MERCAPTOPURINE [Suspect]
     Indication: ACUTE PROMYELOCYTIC LEUKAEMIA
     Dosage: 50 MG 1 X PER 1 DAY
     Dates: start: 20030901
  4. CHEMOTHERAPEUTIC AGENTS, CONTROL FOR GEMTUZUMAB OZOGAMICIN (CHEMOTHERA [Suspect]

REACTIONS (1)
  - CARCINOMA [None]
